FAERS Safety Report 16708723 (Version 1)
Quarter: 2019Q3

REPORT INFORMATION
  Report Type: Other
  Country: DE (occurrence: DE)
  Receive Date: 20190816
  Receipt Date: 20190816
  Transmission Date: 20191004
  Serious: Yes (Hospitalization)
  Sender: FDA-Public Use
  Company Number: DE-EMCURE PHARMACEUTICALS LTD-2019-EPL-0540

PATIENT
  Age: 81 Year
  Sex: Male
  Weight: 64 kg

DRUGS (15)
  1. FLUVASTATIN [Concomitant]
     Active Substance: FLUVASTATIN SODIUM
     Dosage: 80 MILLIGRAM, QD
     Route: 048
  2. FLUOROURACIL. [Suspect]
     Active Substance: FLUOROURACIL
     Dosage: 1720 MILLIGRAM, UNK
     Route: 042
     Dates: start: 20180731
  3. FOLINIC ACID [Suspect]
     Active Substance: LEUCOVORIN
     Indication: COLORECTAL CANCER METASTATIC
     Dosage: 344 MILLIGRAM
     Route: 065
     Dates: start: 20180731
  4. VECTIBIX [Suspect]
     Active Substance: PANITUMUMAB
     Indication: COLORECTAL CANCER METASTATIC
     Dosage: 384 MILLIGRAM, UNK
     Route: 042
     Dates: start: 20180731
  5. DARBEPOETIN ALFA [Concomitant]
     Active Substance: DARBEPOETIN ALFA
     Dosage: 30 MICROGRAM, QWK
     Route: 058
  6. FLUOROURACIL. [Suspect]
     Active Substance: FLUOROURACIL
     Indication: COLORECTAL CANCER METASTATIC
     Dosage: 1660 MILLIGRAM, UNK
     Route: 042
     Dates: start: 20180713
  7. HYDROCHLOROTHIAZIDE. [Concomitant]
     Active Substance: HYDROCHLOROTHIAZIDE
     Indication: HYPERTENSION
     Dosage: 25 MILLIGRAM, QD
     Route: 048
  8. ALLOPURINOL. [Concomitant]
     Active Substance: ALLOPURINOL
     Dosage: 300 MILLIGRAM, QD
     Route: 048
  9. SODIUM HYDROGEN CARBONATE [Concomitant]
     Active Substance: SODIUM BICARBONATE
     Dosage: 500 MILLIGRAM, TID
     Route: 048
  10. VALSARTAN. [Concomitant]
     Active Substance: VALSARTAN
     Indication: HYPERTENSION
     Dosage: 160 MILLIGRAM, BID
     Route: 048
  11. IRINOTECAN HYDROCHLORIDE. [Suspect]
     Active Substance: IRINOTECAN HYDROCHLORIDE
     Indication: COLORECTAL CANCER METASTATIC
     Dosage: 309 MILLIGRAM, UNK
     Route: 065
     Dates: start: 20180731
  12. FOLINIC ACID [Suspect]
     Active Substance: LEUCOVORIN
     Dosage: 332 MILLIGRAM, UNK
     Route: 065
     Dates: start: 20180713
  13. ENOXAPARIN [Concomitant]
     Active Substance: ENOXAPARIN
     Dosage: 1000 MILLIGRAM, QD
     Route: 058
  14. NEBIVOLOL. [Concomitant]
     Active Substance: NEBIVOLOL
     Indication: HYPERTENSION
     Dosage: 5 MILLIGRAM, QD
     Route: 048
  15. IRINOTECAN HYDROCHLORIDE. [Suspect]
     Active Substance: IRINOTECAN HYDROCHLORIDE
     Dosage: 299 MILLIGRAM, UNK
     Route: 065
     Dates: start: 20180713

REACTIONS (2)
  - Perioral dermatitis [Recovered/Resolved]
  - Rash [Recovered/Resolved]

NARRATIVE: CASE EVENT DATE: 20180820
